FAERS Safety Report 5271535-7 (Version None)
Quarter: 2007Q1

REPORT INFORMATION
  Report Type: 
  Country: None (occurrence: None)
  Receive Date: 20070316
  Receipt Date: 20070302
  Transmission Date: 20070707
  Serious: Yes (Other)
  Sender: FDA-Public Use
  Company Number: 236250

PATIENT
  Age: 37 Year
  Sex: Male
  Weight: 79.1 kg

DRUGS (8)
  1. BEVACIZUMAB (BEVACIZUMAB) PWDR + SOLVENT, INFUSION SOLN, 100MG [Suspect]
     Indication: GLIOBLASTOMA MULTIFORME
     Dosage: 791, Q2W, INTRAVENOUS
     Route: 042
     Dates: start: 20061025
  2. DECADRON [Concomitant]
  3. SEROQUEL [Concomitant]
  4. KEPPRA [Concomitant]
  5. PROTONIX [Concomitant]
  6. MULTIVITAMIN (MULTIVITAMINS NOS) [Concomitant]
  7. ALLEGRA [Concomitant]
  8. TRILEPTAL [Concomitant]

REACTIONS (1)
  - CEREBRAL HAEMORRHAGE [None]
